FAERS Safety Report 17962213 (Version 1)
Quarter: 2020Q2

REPORT INFORMATION
  Report Type: Report from Study
  Country: None (occurrence: US)
  Receive Date: 20200630
  Receipt Date: 20200630
  Transmission Date: 20200714
  Serious: No
  Sender: FDA-Public Use
  Company Number: US-BIOVITRUM-2019US4436

PATIENT
  Sex: Female

DRUGS (12)
  1. KINERET [Suspect]
     Active Substance: ANAKINRA
     Indication: PRODUCT USED FOR UNKNOWN INDICATION
     Route: 058
     Dates: start: 20191119
  2. TYLENOL [Concomitant]
     Active Substance: ACETAMINOPHEN
  3. OMEPRAZOLE. [Concomitant]
     Active Substance: OMEPRAZOLE
  4. ATORVASTATIN [Concomitant]
     Active Substance: ATORVASTATIN
  5. METOPROLOL. [Concomitant]
     Active Substance: METOPROLOL
  6. ZYRTEC [Concomitant]
     Active Substance: CETIRIZINE HYDROCHLORIDE
  7. CINNAMON SUPPLEMENT PILLS [Concomitant]
  8. TRESIBA [Concomitant]
     Active Substance: INSULIN DEGLUDEC
  9. HUMALOG [Concomitant]
     Active Substance: INSULIN LISPRO
  10. EZETIMIBE. [Concomitant]
     Active Substance: EZETIMIBE
  11. FLONASE [Concomitant]
     Active Substance: FLUTICASONE PROPIONATE
  12. GABAPENTIN. [Concomitant]
     Active Substance: GABAPENTIN

REACTIONS (4)
  - Injection site pain [Unknown]
  - Contusion [Unknown]
  - Pruritus [Unknown]
  - Urticaria [Unknown]
